FAERS Safety Report 24319696 (Version 4)
Quarter: 2024Q3

REPORT INFORMATION
  Report Type: Spontaneous
  Country: PL (occurrence: PL)
  Receive Date: 20240914
  Receipt Date: 20240930
  Transmission Date: 20241017
  Serious: Yes (Death)
  Sender: ROCHE
  Company Number: PL-ROCHE-10000080880

PATIENT
  Age: 38 Year
  Sex: Female

DRUGS (5)
  1. EVRYSDI [Suspect]
     Active Substance: RISDIPLAM
     Indication: Spinal muscular atrophy
     Route: 065
  2. DEXAMETHASONE [Concomitant]
     Active Substance: DEXAMETHASONE
     Route: 042
  3. METOPROLOL [Concomitant]
     Active Substance: METOPROLOL
     Route: 042
  4. CORHYDRON [Concomitant]
     Route: 042
  5. SODIUM CHLORIDE [Concomitant]
     Active Substance: SODIUM CHLORIDE
     Route: 042

REACTIONS (3)
  - Infarction [Fatal]
  - Respiratory failure [Fatal]
  - Respiration abnormal [Fatal]
